FAERS Safety Report 12087074 (Version 1)
Quarter: 2016Q1

REPORT INFORMATION
  Report Type: Spontaneous
  Country: US (occurrence: US)
  Receive Date: 20160217
  Receipt Date: 20160217
  Transmission Date: 20160526
  Serious: No
  Sender: FDA-Public Use
  Company Number: US-ALLERGAN-1505988US

PATIENT
  Sex: Female
  Weight: 81.63 kg

DRUGS (10)
  1. METFORMIN [Concomitant]
     Active Substance: METFORMIN HYDROCHLORIDE
     Indication: DIABETES MELLITUS
     Dosage: UNK
     Route: 048
  2. LORATADINE. [Concomitant]
     Active Substance: LORATADINE
     Indication: SEASONAL ALLERGY
     Dosage: 10 MG, UNK
     Route: 048
  3. NORTRIPTYLIN [Concomitant]
     Active Substance: NORTRIPTYLINE
     Indication: FATIGUE
     Dosage: 25 MG, QHS
     Route: 048
  4. MULTIVITAMINS [Concomitant]
     Active Substance: VITAMINS
     Indication: SUPPLEMENTATION THERAPY
     Dosage: UNK
     Route: 048
  5. PRILOSEC [Concomitant]
     Active Substance: OMEPRAZOLE MAGNESIUM
     Indication: DYSPEPSIA
     Dosage: 20 MG, BID
  6. GENTILE [Concomitant]
     Indication: DRY EYE
     Dosage: UNK UNK, PRN
     Route: 031
  7. BUPROPION. [Concomitant]
     Active Substance: BUPROPION
     Indication: DEPRESSION
     Dosage: UNK
     Route: 048
  8. RESTASIS [Suspect]
     Active Substance: CYCLOSPORINE
     Indication: DRY EYE
     Dosage: 1 GTT, BID
     Route: 031
     Dates: start: 2012
  9. BLINK                              /00582501/ [Concomitant]
     Indication: DRY EYE
     Dosage: UNK, PRN
     Route: 031
  10. ROPINIROLE. [Concomitant]
     Active Substance: ROPINIROLE
     Indication: RESTLESS LEGS SYNDROME
     Dosage: 0.25 MG (6 TABS DAILY)
     Route: 048

REACTIONS (2)
  - Eye pain [Not Recovered/Not Resolved]
  - Instillation site pain [Not Recovered/Not Resolved]
